FAERS Safety Report 13850613 (Version 1)
Quarter: 2017Q3

REPORT INFORMATION
  Report Type: Report from Study
  Country: None (occurrence: NL)
  Receive Date: 20170810
  Receipt Date: 20170810
  Transmission Date: 20171127
  Serious: Yes (Death)
  Sender: FDA-Public Use
  Company Number: NL-ABBVIE-17K-114-2066360-00

PATIENT
  Sex: Female

DRUGS (1)
  1. DUODOPA [Suspect]
     Active Substance: CARBIDOPA\LEVODOPA
     Indication: PARKINSON^S DISEASE
     Dosage: MORNING DOSE: 8  CONTINUOUS DOSE:?5     EXTRA DOSE:  2  NIGHT DOSE:  2
     Route: 050
     Dates: start: 20170222

REACTIONS (3)
  - Pain [Fatal]
  - Secretion discharge [Fatal]
  - Dyspnoea [Fatal]

NARRATIVE: CASE EVENT DATE: 2017
